FAERS Safety Report 9618192 (Version 2)
Quarter: 2013Q4

REPORT INFORMATION
  Report Type: Spontaneous
  Country: US (occurrence: US)
  Receive Date: 20131014
  Receipt Date: 20131122
  Transmission Date: 20140711
  Serious: Yes (Hospitalization, Other)
  Sender: FDA-Public Use
  Company Number: US-BIOGENIDEC-2013BI095079

PATIENT
  Sex: Male

DRUGS (1)
  1. AVONEX [Suspect]
     Indication: MULTIPLE SCLEROSIS
     Route: 030
     Dates: start: 20060518, end: 201308

REACTIONS (4)
  - Crohn^s disease [Unknown]
  - Immune system disorder [Unknown]
  - Skin infection [Not Recovered/Not Resolved]
  - Diarrhoea [Unknown]
